FAERS Safety Report 19737242 (Version 2)
Quarter: 2021Q3

REPORT INFORMATION
  Report Type: Report from Study
  Country: None (occurrence: ES)
  Receive Date: 20210824
  Receipt Date: 20210826
  Transmission Date: 20211014
  Serious: Yes (Hospitalization)
  Sender: FDA-Public Use
  Company Number: ES-ABBVIE-21K-144-4046638-00

PATIENT
  Age: 64 Year
  Sex: Male

DRUGS (2)
  1. DUODOPA [Suspect]
     Active Substance: CARBIDOPA\LEVODOPA
     Indication: PARKINSON^S DISEASE
     Route: 050
     Dates: start: 20150921
  2. DUODOPA [Suspect]
     Active Substance: CARBIDOPA\LEVODOPA

REACTIONS (7)
  - Decubitus ulcer [Not Recovered/Not Resolved]
  - Anaemia [Unknown]
  - Mobility decreased [Unknown]
  - Perforated ulcer [Not Recovered/Not Resolved]
  - Infected skin ulcer [Unknown]
  - Constipation [Unknown]
  - Device alarm issue [Unknown]

NARRATIVE: CASE EVENT DATE: 202108
